FAERS Safety Report 4955141-7 (Version None)
Quarter: 2006Q1

REPORT INFORMATION
  Report Type: 
  Country: None (occurrence: None)
  Receive Date: 20060322
  Receipt Date: 20060309
  Transmission Date: 20060701
  Serious: Yes (Other)
  Sender: FDA-Public Use
  Company Number: 2006034502

PATIENT
  Age: 65 Year
  Sex: Male
  Weight: 78.0187 kg

DRUGS (3)
  1. VIAGRA [Suspect]
     Indication: ERECTILE DYSFUNCTION
     Dosage: 50 MG (50 MG, 1 AS NECESSARY)
  2. CIALIS [Suspect]
     Indication: ERECTILE DYSFUNCTION
  3. PLENDIL [Concomitant]

REACTIONS (6)
  - ARTERIAL OCCLUSIVE DISEASE [None]
  - CYANOPSIA [None]
  - DRUG INEFFECTIVE [None]
  - MUSCLE SPASMS [None]
  - NASAL CONGESTION [None]
  - NEPHROLITHIASIS [None]
